FAERS Safety Report 12507178 (Version 2)
Quarter: 2016Q3

REPORT INFORMATION
  Report Type: Spontaneous
  Country: TR (occurrence: TR)
  Receive Date: 20160629
  Receipt Date: 20160715
  Transmission Date: 20161109
  Serious: Yes (Other)
  Sender: FDA-Public Use
  Company Number: TR-SUN PHARMACEUTICAL INDUSTRIES LTD-2016RR-119226

PATIENT
  Age: 26 Year
  Sex: Female

DRUGS (2)
  1. MIRTAZAPINE SCHERING-PLOUGH [Suspect]
     Active Substance: MIRTAZAPINE
     Indication: DEPRESSION
  2. MIRTAZAPINE SCHERING-PLOUGH [Suspect]
     Active Substance: MIRTAZAPINE
     Indication: GENERALISED ANXIETY DISORDER
     Dosage: 30 MG, DAILY
     Route: 065

REACTIONS (1)
  - Papilloedema [Recovered/Resolved]
